FAERS Safety Report 7267832-6 (Version None)
Quarter: 2011Q1

REPORT INFORMATION
  Report Type: 
  Country: None (occurrence: None)
  Receive Date: 20110201
  Receipt Date: 20110124
  Transmission Date: 20110831
  Serious: Yes (Hospitalization)
  Sender: FDA-Public Use
  Company Number: B0696550A

PATIENT
  Sex: Male
  Weight: 75 kg

DRUGS (37)
  1. ADALAT [Concomitant]
     Dosage: 5MG PER DAY
     Route: 048
     Dates: start: 20070225, end: 20070301
  2. PRIMPERAN TAB [Concomitant]
     Dosage: 8ML PER DAY
     Dates: start: 20070222
  3. ALKERAN [Suspect]
     Indication: STEM CELL TRANSPLANT
     Dosage: 70MGM2 PER DAY
     Route: 042
     Dates: start: 20070226
  4. BLOPRESS [Concomitant]
     Dosage: 8MG PER DAY
     Route: 048
     Dates: start: 20070214, end: 20070508
  5. ZYLORIC [Concomitant]
     Route: 002
     Dates: start: 20070222, end: 20070314
  6. PRIMPERAN TAB [Concomitant]
     Dosage: 2ML PER DAY
     Dates: start: 20070304
  7. MODACIN [Concomitant]
     Dosage: 4IUAX PER DAY
     Route: 042
     Dates: start: 20070305
  8. VENOGLOBULIN [Concomitant]
     Dosage: 2IUAX PER DAY
     Route: 042
     Dates: start: 20070307
  9. MAALOX [Concomitant]
     Dosage: 4.8G PER DAY
     Route: 048
     Dates: start: 20070214, end: 20070308
  10. LOXONIN [Concomitant]
     Dosage: 60MG PER DAY
     Route: 048
     Dates: start: 20070226, end: 20070306
  11. MEROPENEM [Concomitant]
     Dosage: 4IUAX PER DAY
     Route: 042
     Dates: start: 20070307
  12. GRAN [Concomitant]
     Dosage: 150MCG PER DAY
     Dates: start: 20070306, end: 20070311
  13. OMEPRAL [Concomitant]
     Dosage: 20MG PER DAY
     Route: 048
     Dates: start: 20070214, end: 20070508
  14. FUNGIZONE [Concomitant]
     Dosage: 60ML PER DAY
     Route: 002
     Dates: start: 20070219, end: 20070318
  15. HACHIAZULE [Concomitant]
     Route: 002
     Dates: start: 20070311, end: 20070402
  16. KOLANTYL [Concomitant]
     Dosage: 3G PER DAY
     Route: 048
     Dates: start: 20070312, end: 20070508
  17. KYTRIL [Concomitant]
     Dosage: 6ML PER DAY
     Dates: start: 20070222
  18. MEYLON [Concomitant]
     Dosage: 80ML PER DAY
     Route: 042
     Dates: start: 20070225, end: 20070227
  19. HAPTOGLOBIN [Concomitant]
     Dosage: 1IUAX PER DAY
     Route: 042
     Dates: start: 20070301, end: 20070301
  20. BUSULFAN [Suspect]
     Indication: STEM CELL TRANSPLANT
     Dosage: 4MGK PER DAY
     Route: 048
     Dates: start: 20070223
  21. DEPAS [Concomitant]
     Dosage: 1.5MG PER DAY
     Route: 048
     Dates: start: 20070304, end: 20070311
  22. SPARFLOXACIN [Concomitant]
     Dosage: 300MG PER DAY
     Route: 048
     Dates: start: 20070314
  23. SOLU-CORTEF [Concomitant]
     Dosage: 2IUAX PER DAY
     Dates: start: 20070226, end: 20070318
  24. DIFLUCAN [Concomitant]
     Dosage: 400MG PER DAY
     Route: 048
     Dates: start: 20070219, end: 20070307
  25. METHYCOBAL [Concomitant]
     Dosage: 1500MCG PER DAY
     Route: 048
     Dates: start: 20070221, end: 20070508
  26. ADOFEED [Concomitant]
     Route: 062
     Dates: start: 20070226, end: 20070226
  27. PRIMPERAN TAB [Concomitant]
     Dosage: 4ML PER DAY
     Dates: start: 20070305
  28. FUNGUARD [Concomitant]
     Dosage: 3IUAX PER DAY
     Route: 042
     Dates: start: 20070307, end: 20070313
  29. ISODINE GARGLE [Concomitant]
     Route: 002
     Dates: start: 20070226, end: 20070312
  30. CYTOTEC [Concomitant]
     Dosage: 200MCG PER DAY
     Route: 048
     Dates: start: 20070226, end: 20070306
  31. XYLOCAINE [Concomitant]
     Dosage: 100ML PER DAY
     Route: 065
     Dates: start: 20070313, end: 20070313
  32. HEPARIN [Concomitant]
     Dosage: 20ML PER DAY
     Route: 042
     Dates: start: 20070221, end: 20070313
  33. AMIKACIN SULFATE [Concomitant]
     Dosage: 2ML PER DAY
     Dates: start: 20070307
  34. GASLON N [Concomitant]
     Dosage: 4MG PER DAY
     Route: 048
     Dates: start: 20070214, end: 20070508
  35. URINORM [Concomitant]
     Dosage: 50MG PER DAY
     Route: 048
     Dates: start: 20070214, end: 20070508
  36. CRAVIT [Concomitant]
     Dosage: 400MG PER DAY
     Route: 048
     Dates: start: 20070219, end: 20070304
  37. NEOLAMIN [Concomitant]
     Dosage: 10ML PER DAY
     Route: 042
     Dates: start: 20070304

REACTIONS (2)
  - STAPHYLOCOCCAL INFECTION [None]
  - C-REACTIVE PROTEIN INCREASED [None]
